FAERS Safety Report 9027236 (Version 1)
Quarter: 2013Q1

REPORT INFORMATION
  Report Type: Spontaneous
  Country: US (occurrence: US)
  Receive Date: 20130123
  Receipt Date: 20130123
  Transmission Date: 20140127
  Serious: No
  Sender: FDA-Public Use
  Company Number: US-ASTRAZENECA-2013SE03345

PATIENT
  Sex: Female

DRUGS (2)
  1. SYMBICORT PMDI [Suspect]
     Indication: ASTHMA
     Dosage: 160/4.5 MCG,2 DAILY
     Route: 055
     Dates: start: 201202, end: 201202
  2. SYMBICORT PMDI [Suspect]
     Indication: ASTHMA
     Dosage: UNKNOWN
     Route: 055
     Dates: start: 201209

REACTIONS (4)
  - Chest discomfort [Unknown]
  - Disease recurrence [Unknown]
  - Cough [Unknown]
  - Intentional drug misuse [Unknown]
